FAERS Safety Report 7525875-9 (Version None)
Quarter: 2011Q2

REPORT INFORMATION
  Report Type: 
  Country: None (occurrence: None)
  Receive Date: 20110606
  Receipt Date: 20110527
  Transmission Date: 20111010
  Serious: Yes (Hospitalization, Other)
  Sender: FDA-Public Use
  Company Number: A0930116A

PATIENT
  Age: 53 Year
  Sex: Male

DRUGS (12)
  1. CHANTIX [Suspect]
     Indication: SMOKING CESSATION THERAPY
     Route: 048
     Dates: end: 20110101
  2. PERCOCET [Suspect]
     Indication: BACK DISORDER
     Dosage: 10MG FOUR TIMES PER DAY
     Route: 048
  3. ACCOLATE [Concomitant]
     Indication: CHRONIC OBSTRUCTIVE PULMONARY DISEASE
     Dosage: 20MG TWICE PER DAY
     Route: 048
  4. VENTOLIN HFA [Suspect]
     Indication: CHRONIC OBSTRUCTIVE PULMONARY DISEASE
     Route: 055
  5. SYMBICORT [Concomitant]
     Indication: CHRONIC OBSTRUCTIVE PULMONARY DISEASE
     Route: 055
  6. METFORMIN HCL [Concomitant]
     Indication: DIABETES MELLITUS
     Dosage: 500MG TWICE PER DAY
     Route: 048
  7. DILTIAZEM [Concomitant]
     Dosage: 240MGD PER DAY
  8. ADVAIR DISKUS 100/50 [Suspect]
     Dosage: 2PUFF TWICE PER DAY
     Route: 055
  9. VIAGRA [Concomitant]
     Route: 048
  10. LORTAB [Suspect]
     Indication: BACK DISORDER
     Dosage: 10MG SIX TIMES PER DAY
     Route: 048
  11. DUONEB [Concomitant]
     Indication: CHRONIC OBSTRUCTIVE PULMONARY DISEASE
     Route: 055
  12. ASPIRIN [Concomitant]
     Dosage: 325MGD PER DAY

REACTIONS (10)
  - DRUG INTERACTION [None]
  - INHALATION THERAPY [None]
  - SPINAL FRACTURE [None]
  - NEURALGIA [None]
  - OVERDOSE [None]
  - TOTAL LUNG CAPACITY DECREASED [None]
  - NIGHTMARE [None]
  - LUNG DISORDER [None]
  - HEART RATE INCREASED [None]
  - PULMONARY FUNCTION TEST DECREASED [None]
